FAERS Safety Report 9742578 (Version 1)
Quarter: 2013Q4

REPORT INFORMATION
  Report Type: Spontaneous
  Country: US (occurrence: US)
  Receive Date: 20131210
  Receipt Date: 20131210
  Transmission Date: 20140711
  Serious: No
  Sender: FDA-Public Use
  Company Number: US-GILEAD-2009-0024514

PATIENT
  Sex: Female
  Weight: 54.88 kg

DRUGS (12)
  1. LETAIRIS [Suspect]
     Indication: PULMONARY ARTERIAL HYPERTENSION
     Route: 048
     Dates: start: 20090909
  2. REVATIO [Concomitant]
  3. FUROSEMIDE [Concomitant]
  4. DILTIAZEM [Concomitant]
  5. PLAVIX [Concomitant]
  6. PROTONIX [Concomitant]
  7. ASACOL [Concomitant]
  8. LISINOPRIL [Concomitant]
  9. CENTRUM SILVER [Concomitant]
  10. ASPIRIN [Concomitant]
  11. OXYGEN [Concomitant]
  12. POTASSIUM CHLORIDE [Concomitant]

REACTIONS (2)
  - Blood pressure decreased [Unknown]
  - Pyrexia [Unknown]
